FAERS Safety Report 8488833-6 (Version None)
Quarter: 2012Q3

REPORT INFORMATION
  Report Type: 
  Country: None (occurrence: None)
  Receive Date: 20120705
  Receipt Date: 20120628
  Transmission Date: 20120928
  Serious: Yes (Death, Hospitalization)
  Sender: FDA-Public Use
  Company Number: JP-CUBIST-2012S1000348

PATIENT
  Age: 70 Year
  Sex: Male

DRUGS (15)
  1. ALL OTHER THERAPEUTIC PRODUCTS [Concomitant]
     Indication: TYPE 2 DIABETES MELLITUS
     Route: 048
     Dates: start: 20111210, end: 20120318
  2. MAGLAX [Concomitant]
     Indication: CONSTIPATION
     Route: 048
     Dates: start: 20071114, end: 20120318
  3. PROCHLORPERAZINE [Concomitant]
     Indication: NAUSEA
     Route: 048
     Dates: start: 20120304, end: 20120318
  4. LYRICA [Concomitant]
     Indication: NEURALGIA
     Route: 048
     Dates: start: 20120206, end: 20120318
  5. ALL OTHER THERAPEUTIC PRODUCTS [Concomitant]
     Route: 048
     Dates: start: 20120118, end: 20120130
  6. CARVEDILOL [Concomitant]
     Indication: HYPERTENSION
     Route: 048
     Dates: start: 20111107, end: 20120318
  7. HYDROXYZINE [Concomitant]
     Indication: DERMATITIS EXFOLIATIVE
     Route: 048
     Dates: start: 20100704, end: 20120318
  8. ALL OTHER THERAPEUTIC PRODUCTS [Concomitant]
     Indication: CHRONIC MYELOID LEUKAEMIA
     Route: 048
     Dates: start: 20090908, end: 20111014
  9. OXYCODONE HYDROCHLORIDE [Concomitant]
     Indication: PAIN
     Route: 048
     Dates: start: 20120206, end: 20120324
  10. RILMAZAFONE [Concomitant]
     Indication: INSOMNIA
     Route: 048
     Dates: start: 20120112, end: 20120318
  11. ALL OTHER THERAPEUTIC PRODUCTS [Concomitant]
     Route: 048
     Dates: start: 20090402, end: 20090511
  12. CEFTRIAXONE [Concomitant]
     Indication: SEPSIS
     Dosage: DOSE UNIT:1
     Route: 042
     Dates: start: 20120313, end: 20120314
  13. OLOPATADINE HCL [Concomitant]
     Indication: DERMATITIS EXFOLIATIVE
     Route: 048
     Dates: start: 20081006, end: 20120318
  14. IMATINIB MESYLATE [Concomitant]
     Indication: CHRONIC MYELOID LEUKAEMIA
     Route: 048
     Dates: start: 20071113, end: 20090323
  15. CUBICIN [Suspect]
     Indication: STAPHYLOCOCCAL BACTERAEMIA
     Route: 042
     Dates: start: 20120313, end: 20120404

REACTIONS (2)
  - STEVENS-JOHNSON SYNDROME [None]
  - RENAL FAILURE ACUTE [None]
